FAERS Safety Report 15296537 (Version 1)
Quarter: 2018Q3

REPORT INFORMATION
  Report Type: Spontaneous
  Country: PL (occurrence: PL)
  Receive Date: 20180820
  Receipt Date: 20180820
  Transmission Date: 20181010
  Serious: Yes (Hospitalization)
  Sender: FDA-Public Use
  Company Number: PL-PFIZER INC-2018327105

PATIENT
  Age: 7 Year
  Sex: Female
  Weight: 6 kg

DRUGS (2)
  1. CEFAZOLIN [Suspect]
     Active Substance: CEFAZOLIN
     Indication: ATRIAL SEPTAL DEFECT
     Dosage: 150 MG, 3X/DAY
     Route: 042
  2. PERFALGAN [Suspect]
     Active Substance: ACETAMINOPHEN
     Indication: ATRIAL SEPTAL DEFECT
     Dosage: 100 MG, 1X/DAY
     Route: 042

REACTIONS (3)
  - Effusion [Unknown]
  - Product use in unapproved indication [Unknown]
  - Rash generalised [Unknown]
